FAERS Safety Report 15273356 (Version 1)
Quarter: 2018Q3

REPORT INFORMATION
  Report Type: Report from Study
  Country: US (occurrence: US)
  Receive Date: 20180813
  Receipt Date: 20180813
  Transmission Date: 20181010
  Serious: Yes (Hospitalization, Other)
  Sender: FDA-Public Use
  Company Number: US-SHIRE-US201830894

PATIENT

DRUGS (1)
  1. GATTEX [Suspect]
     Active Substance: TEDUGLUTIDE\WATER
     Indication: SHORT-BOWEL SYNDROME
     Dosage: 0.325 ML, 1X/DAY:QD (DAILY)
     Route: 058

REACTIONS (3)
  - Renal disorder [Unknown]
  - Hospitalisation [Unknown]
  - Cardiac disorder [Unknown]
